FAERS Safety Report 9242336 (Version 3)
Quarter: 2013Q2

REPORT INFORMATION
  Report Type: Spontaneous
  Country: NL (occurrence: NL)
  Receive Date: 20130419
  Receipt Date: 20130513
  Transmission Date: 20140414
  Serious: Yes (Death, Life-Threatening, Hospitalization)
  Sender: FDA-Public Use
  Company Number: NL-TEVA-397955ISR

PATIENT
  Age: 38 Year
  Sex: Male
  Weight: 80 kg

DRUGS (7)
  1. PROPRANOLOL CAPSULE MGA 80MG [Suspect]
     Indication: VARICES OESOPHAGEAL
     Dosage: 80 MILLIGRAM DAILY; ONCE DAILY ONE PIECE
     Route: 048
     Dates: start: 20130325, end: 20130326
  2. URSODEOXYCHOLZUUR TABLET 300MG [Concomitant]
     Dosage: 300 MILLIGRAM DAILY; ONCE DAILY ONE PIECE
     Route: 048
     Dates: start: 20110101
  3. MESALAZINE GRANULAAT MGA 2G [Concomitant]
     Dosage: 2 GRAM DAILY; ONCE DAILY ONE PIECE
     Route: 048
     Dates: start: 19800101
  4. PANTOPRAZOL TABLET MSR 40MG [Concomitant]
     Dosage: 40 MILLIGRAM DAILY; ONCE DAILY ONE PIECE
     Route: 048
     Dates: start: 19800101
  5. PREDNISOLON TABLET  5MG [Concomitant]
     Dosage: 5 MILLIGRAM DAILY; ONCE DAILY TWO PIECES
     Route: 048
     Dates: start: 20130222
  6. ACENOCOUMAROL TABLET 1MG [Concomitant]
     Dosage: 2 DOSAGE FORMS DAILY; ONCE DAILY TWO PIECES
     Route: 048
     Dates: start: 20130320
  7. FRAGMIN  15000 INJVLST 25.000IE/ML WWSP 0,6ML [Concomitant]
     Dosage: .6 ML DAILY; ONCE DAILY ONE PIECE
     Dates: start: 20130321

REACTIONS (2)
  - Pancreatitis [Unknown]
  - Hepatic failure [Fatal]
